FAERS Safety Report 6855876-5 (Version None)
Quarter: 2010Q2

REPORT INFORMATION
  Report Type: 
  Country: None (occurrence: None)
  Receive Date: 20100629
  Receipt Date: 20100319
  Transmission Date: 20101027
  Serious: No
  Sender: FDA-Public Use
  Company Number: US-WYE-H14248110

PATIENT
  Age: 56 Year
  Sex: Male
  Weight: 118.04 kg

DRUGS (2)
  1. PRISTIQ [Suspect]
     Dosage: 100 MG 1X PER 1 DAY, ORAL : 50 MG 1X PER 1 DAY, ORAL
     Route: 048
     Dates: start: 20100301, end: 20100518
  2. PRISTIQ [Suspect]
     Dosage: 100 MG 1X PER 1 DAY, ORAL : 50 MG 1X PER 1 DAY, ORAL
     Route: 048
     Dates: start: 20100519

REACTIONS (4)
  - ANXIETY [None]
  - CHEST PAIN [None]
  - DRUG EFFECT DECREASED [None]
  - SOMNOLENCE [None]
